FAERS Safety Report 6700917-9 (Version None)
Quarter: 2010Q2

REPORT INFORMATION
  Report Type: 
  Country: None (occurrence: None)
  Receive Date: 20100428
  Receipt Date: 20100419
  Transmission Date: 20101027
  Serious: Yes (Hospitalization)
  Sender: FDA-Public Use
  Company Number: US-JNJFOC-20100405185

PATIENT
  Sex: Male
  Weight: 112.49 kg

DRUGS (4)
  1. DURAGESIC-100 [Suspect]
     Indication: OSTEOARTHRITIS
     Route: 062
  2. DURAGESIC-100 [Suspect]
     Indication: PANCREATITIS
     Dosage: NDC NUMBER 50458-0094-05
     Route: 062
  3. ACIPHEX [Concomitant]
     Indication: GASTRIC DISORDER
     Route: 048
  4. TOPAMAX [Concomitant]
     Indication: MIGRAINE
     Route: 048

REACTIONS (6)
  - ACNE [None]
  - DEPRESSION [None]
  - DRUG INEFFECTIVE [None]
  - PANCREATITIS [None]
  - WEIGHT DECREASED [None]
  - WRONG TECHNIQUE IN DRUG USAGE PROCESS [None]
